FAERS Safety Report 5404645-1 (Version None)
Quarter: 2007Q3

REPORT INFORMATION
  Report Type: 
  Country: None (occurrence: None)
  Receive Date: 20070802
  Receipt Date: 20070725
  Transmission Date: 20080115
  Serious: Yes (Hospitalization)
  Sender: FDA-Public Use
  Company Number: US-MERCK-0708USA00086

PATIENT
  Age: 44 Year
  Sex: Male
  Weight: 119 kg

DRUGS (7)
  1. VYTORIN [Suspect]
     Route: 048
     Dates: start: 20050101
  2. HYZAAR [Concomitant]
     Route: 048
  3. VICODIN ES [Concomitant]
     Route: 048
  4. TOPROL-XL [Concomitant]
     Route: 048
  5. METHOTREXATE [Concomitant]
     Route: 065
  6. ENBREL [Concomitant]
     Route: 065
  7. VITAMINS (UNSPECIFIED) [Concomitant]
     Route: 065

REACTIONS (1)
  - CHEST PAIN [None]
